FAERS Safety Report 20378114 (Version 1)
Quarter: 2022Q1

REPORT INFORMATION
  Report Type: Report from Study
  Country: US (occurrence: None)
  Receive Date: 20220126
  Receipt Date: 20220126
  Transmission Date: 20220424
  Serious: Yes (Other)
  Sender: FDA-Public Use
  Company Number: US-ROCHE-3003301

PATIENT
  Age: 28 Year
  Sex: Male
  Weight: 99.2 kg

DRUGS (4)
  1. ATEZOLIZUMAB [Suspect]
     Active Substance: ATEZOLIZUMAB
     Indication: Colon cancer
     Dosage: ON DAY 1?LAST ADMINISTERED DATE: 15/NOV/2021
     Route: 041
  2. OXALIPLATIN [Suspect]
     Active Substance: OXALIPLATIN
     Indication: Colon cancer
     Dosage: OVER 2 HOURS ON DAY 1?LAST ADMINISTERED DATE: 15/NOV/2021
     Route: 042
  3. LEUCOVORIN CALCIUM [Suspect]
     Active Substance: LEUCOVORIN CALCIUM
     Indication: Colon cancer
     Dosage: OVER 2 HOURS ON DAY 1?LAST ADMINISTERED DATE: 15/NOV/2021
     Route: 042
  4. FLUOROURACIL [Suspect]
     Active Substance: FLUOROURACIL
     Indication: Colon cancer
     Dosage: ON DAY 1 FOLLOWED BY 2400 MG/M2 IV OVER 46 HOURS DAYS 1-3?LAST ADMINISTERED DATE: 15/NOV/2021
     Route: 040

REACTIONS (2)
  - Muscle spasms [Recovered/Resolved]
  - Flank pain [Recovered/Resolved]

NARRATIVE: CASE EVENT DATE: 20211115
